FAERS Safety Report 17947499 (Version 1)
Quarter: 2020Q2

REPORT INFORMATION
  Report Type: Spontaneous
  Country: ES (occurrence: ES)
  Receive Date: 20200626
  Receipt Date: 20200626
  Transmission Date: 20200714
  Serious: Yes (Life-Threatening)
  Sender: FDA-Public Use
  Company Number: ES-SUN PHARMACEUTICAL INDUSTRIES LTD-2020RR-251682

PATIENT
  Age: 76 Year
  Sex: Male

DRUGS (5)
  1. REZOLSTA 800 MG / 150 MG COMPRIMIDOS RECUBIERTOS CON PELICULA 30 CO... [Suspect]
     Active Substance: COBICISTAT\DARUNAVIR ETHANOLATE
     Indication: COVID-19
     Dosage: 1 DOSAGE FORM, DAILY
     Route: 048
     Dates: start: 20200317, end: 20200324
  2. AZITHROMYCIN ANHYDROUS. [Suspect]
     Active Substance: AZITHROMYCIN ANHYDROUS
     Indication: COVID-19
     Dosage: 500 MILLIGRAM, DAILY
     Route: 048
     Dates: start: 20200317, end: 20200322
  3. CEFTRIAXONA (501A) [Suspect]
     Active Substance: CEFTRIAXONE
     Indication: COVID-19
     Dosage: 1000 MILLIGRAM, DAILY
     Route: 042
     Dates: start: 20200317, end: 20200324
  4. HIDROXICLOROQUINA SULFATO (2143SU) [Suspect]
     Active Substance: HYDROXYCHLOROQUINE SULFATE
     Indication: COVID-19
     Dosage: 400 MILLIGRAM, DAILY
     Route: 048
     Dates: start: 20200317, end: 20200324
  5. KALETRA [Concomitant]
     Active Substance: LOPINAVIR\RITONAVIR
     Indication: COVID-19
     Dosage: 2 DOSAGE FORM, DAILY
     Route: 048
     Dates: start: 20200317, end: 20200317

REACTIONS (1)
  - Atrial fibrillation [Recovered/Resolved]

NARRATIVE: CASE EVENT DATE: 20200324
